FAERS Safety Report 5129237-3 (Version None)
Quarter: 2006Q4

REPORT INFORMATION
  Report Type: 
  Country: None (occurrence: None)
  Receive Date: 20061011
  Receipt Date: 20060921
  Transmission Date: 20070319
  Serious: Yes (Hospitalization)
  Sender: FDA-Public Use
  Company Number: AT200606004219

PATIENT
  Age: 82 Year
  Sex: Female

DRUGS (2)
  1. TERIPARATIDE (TERIPARATIDE)PEN, DISPOSABLE [Suspect]
     Indication: OSTEOPOROSIS
     Dosage: 20 UG, DAILY (1/D), SUBCUTANEOUS
     Route: 058
     Dates: start: 20050201
  2. FORTEO [Concomitant]

REACTIONS (5)
  - ANKLE FRACTURE [None]
  - FALL [None]
  - FEMORAL NECK FRACTURE [None]
  - ULNA FRACTURE [None]
  - UPPER LIMB FRACTURE [None]
